FAERS Safety Report 8246910-9 (Version None)
Quarter: 2012Q1

REPORT INFORMATION
  Report Type: 
  Country: None (occurrence: None)
  Receive Date: 20120330
  Receipt Date: 20120320
  Transmission Date: 20120608
  Serious: Yes (Other)
  Sender: FDA-Public Use
  Company Number: DK-PFIZER INC-2006041159

PATIENT
  Age: 55 Year
  Sex: Male

DRUGS (4)
  1. ADRENALIN IN OIL INJ [Suspect]
     Indication: ANAPHYLACTIC REACTION
     Dosage: 1 MG DAILY DOSAGE
     Route: 042
  2. ISOTONIC SOLUTIONS [Concomitant]
     Dosage: UNK
     Route: 042
  3. HYDROCORTISONE SODIUM SUCCINATE [Suspect]
     Indication: HYPERSENSITIVITY
     Dosage: 100 MG DAILY DOSAGE
     Route: 042
  4. CLEMASTINE [Suspect]
     Indication: HYPERSENSITIVITY
     Dosage: 2 MG DAILY DOSAGE
     Route: 042

REACTIONS (12)
  - ALTERED STATE OF CONSCIOUSNESS [None]
  - BRADYCARDIA [None]
  - DYSPNOEA [None]
  - CHEST PAIN [None]
  - COLD SWEAT [None]
  - CORONARY ARTERY STENOSIS [None]
  - ANAPHYLACTIC REACTION [None]
  - PALLOR [None]
  - VENTRICULAR HYPOKINESIA [None]
  - MYOCARDIAL ISCHAEMIA [None]
  - BLOOD PRESSURE DECREASED [None]
  - ELECTROCARDIOGRAM CHANGE [None]
